FAERS Safety Report 8484036-X (Version None)
Quarter: 2012Q2

REPORT INFORMATION
  Report Type: 
  Country: None (occurrence: None)
  Receive Date: 20120627
  Receipt Date: 20120627
  Transmission Date: 20120825
  Serious: Yes (Hospitalization)
  Sender: FDA-Public Use
  Company Number: None

PATIENT
  Age: 37 Year
  Weight: 105.7 kg

DRUGS (1)
  1. AZITHROMYCIN [Suspect]
     Indication: INFLUENZA LIKE ILLNESS
     Dosage: 250 MG DAILY PO
     Route: 048
     Dates: start: 20120523

REACTIONS (3)
  - RASH [None]
  - HEPATITIS ACUTE [None]
  - COAGULOPATHY [None]
